FAERS Safety Report 17539452 (Version 2)
Quarter: 2020Q1

REPORT INFORMATION
  Report Type: Spontaneous
  Country: US (occurrence: US)
  Receive Date: 20200313
  Receipt Date: 20200316
  Transmission Date: 20200409
  Serious: No
  Sender: FDA-Public Use
  Company Number: US-PFIZER INC-2020109128

PATIENT
  Sex: Female

DRUGS (1)
  1. CYTARABINE. [Suspect]
     Active Substance: CYTARABINE
     Dosage: UNK

REACTIONS (8)
  - Musculoskeletal pain [Recovered/Resolved]
  - Dyspnoea [Not Recovered/Not Resolved]
  - Occupational exposure to product [Unknown]
  - Oropharyngeal pain [Unknown]
  - Rhinorrhoea [Not Recovered/Not Resolved]
  - Headache [Unknown]
  - Fatigue [Not Recovered/Not Resolved]
  - Arthralgia [Unknown]
